FAERS Safety Report 20350685 (Version 11)
Quarter: 2022Q1

REPORT INFORMATION
  Report Type: Report from Study
  Country: US (occurrence: US)
  Receive Date: 20220119
  Receipt Date: 20220321
  Transmission Date: 20220423
  Serious: No
  Sender: FDA-Public Use
  Company Number: US-NOVARTISTESTPH-NVSC2022US009376

PATIENT
  Sex: Female
  Weight: 52.154 kg

DRUGS (11)
  1. TREPROSTINIL [Suspect]
     Active Substance: TREPROSTINIL
     Indication: Pulmonary arterial hypertension
     Dosage: UNK
     Route: 058
  2. TREPROSTINIL [Suspect]
     Active Substance: TREPROSTINIL
     Dosage: 24 NG/KG/MIN, CONT
     Route: 042
     Dates: start: 20220119
  3. TREPROSTINIL [Suspect]
     Active Substance: TREPROSTINIL
     Dosage: 24 NG/KG/MIN, CONT
     Route: 058
     Dates: start: 20220119
  4. TREPROSTINIL [Suspect]
     Active Substance: TREPROSTINIL
     Dosage: 24 NG/KG/MIN, CONT
     Route: 058
     Dates: start: 20220119
  5. TREPROSTINIL [Suspect]
     Active Substance: TREPROSTINIL
     Dosage: 47.8 NG/KG/MIN, CONT
     Route: 058
     Dates: start: 20220119
  6. TREPROSTINIL [Suspect]
     Active Substance: TREPROSTINIL
     Dosage: 34.2 NG/KG/MIN, CONT
     Route: 058
     Dates: start: 20220119
  7. TREPROSTINIL [Suspect]
     Active Substance: TREPROSTINIL
     Dosage: 61.4 NG/KG/MIN, CONT
     Route: 058
     Dates: start: 20220119
  8. AMLODIPINE [Concomitant]
     Active Substance: AMLODIPINE BESYLATE
     Indication: Product used for unknown indication
     Dosage: UNKNOWN
     Route: 065
  9. VELETRI [Concomitant]
     Active Substance: EPOPROSTENOL
     Indication: Product used for unknown indication
     Dosage: UNKNOWN
     Route: 065
  10. TADALAFIL [Concomitant]
     Active Substance: TADALAFIL
     Indication: Product used for unknown indication
     Dosage: UNK, BID
     Route: 065
  11. AMBRISENTAN [Concomitant]
     Active Substance: AMBRISENTAN
     Indication: Product used for unknown indication
     Route: 065

REACTIONS (19)
  - Anxiety [Unknown]
  - Pain [Unknown]
  - Dyspnoea [Unknown]
  - Haemoptysis [Unknown]
  - Nervousness [Unknown]
  - Peripheral swelling [Unknown]
  - Asthenia [Unknown]
  - Nausea [Unknown]
  - Vomiting [Recovered/Resolved]
  - Headache [Unknown]
  - Myalgia [Unknown]
  - Injection site pain [Unknown]
  - Dizziness postural [Unknown]
  - Oedema [Unknown]
  - Infusion site erythema [Unknown]
  - Oedema peripheral [Unknown]
  - Swelling face [Unknown]
  - Injection site swelling [Unknown]
  - Arthralgia [Unknown]
